FAERS Safety Report 19814868 (Version 1)
Quarter: 2021Q3

REPORT INFORMATION
  Report Type: Spontaneous
  Country: US (occurrence: US)
  Receive Date: 20210908
  Receipt Date: 20210908
  Transmission Date: 20211014
  Serious: Yes (Hospitalization)
  Sender: FDA-Public Use
  Company Number: None

PATIENT
  Sex: Female

DRUGS (17)
  1. CIPROFLOXACN [Concomitant]
     Active Substance: CIPROFLOXACIN
  2. PREDNISONE. [Concomitant]
     Active Substance: PREDNISONE
  3. ONDANSETRON [Concomitant]
     Active Substance: ONDANSETRON
  4. POLYETH GLYC [Concomitant]
     Active Substance: POLYETHYLENE GLYCOLS
  5. XARELTO [Concomitant]
     Active Substance: RIVAROXABAN
  6. TAFINLAR [Suspect]
     Active Substance: DABRAFENIB MESYLATE
     Indication: NEOPLASM MALIGNANT
     Dosage: ?          OTHER DOSE:2 CAPS;?
     Route: 048
     Dates: start: 20200208
  7. DOCUSATE SOD [Concomitant]
  8. STIMULANT [Concomitant]
     Active Substance: UNSPECIFIED INGREDIENT
  9. MEKINIST [Suspect]
     Active Substance: TRAMETINIB DIMETHYL SULFOXIDE
     Indication: NEOPLASM MALIGNANT
     Dosage: ?          OTHER DOSE:1 TAB;?
     Route: 048
     Dates: start: 20200208
  10. PANTOPRAZOLE [Concomitant]
     Active Substance: PANTOPRAZOLE
  11. SMZ/TMP DS [Concomitant]
     Active Substance: SULFAMETHOXAZOLE\TRIMETHOPRIM
  12. ACETAMIN [Concomitant]
     Active Substance: ACETAMINOPHEN
  13. LEVOTHYROXIN [Concomitant]
     Active Substance: LEVOTHYROXINE
  14. FOLIC ACID. [Concomitant]
     Active Substance: FOLIC ACID
  15. OXYMORPHONE HCL [Concomitant]
     Active Substance: OXYMORPHONE HYDROCHLORIDE
  16. ZOLPIDEM ER [Concomitant]
     Active Substance: ZOLPIDEM TARTRATE
  17. BRIVIACT [Concomitant]
     Active Substance: BRIVARACETAM

REACTIONS (2)
  - Fall [None]
  - Hip fracture [None]
